FAERS Safety Report 23043781 (Version 2)
Quarter: 2023Q4

REPORT INFORMATION
  Report Type: Spontaneous
  Country: GB (occurrence: GB)
  Receive Date: 20231009
  Receipt Date: 20231219
  Transmission Date: 20240110
  Serious: Yes (Other)
  Sender: FDA-Public Use
  Company Number: GB-002147023-NVSC2020GB370929

PATIENT
  Age: 53 Year
  Sex: Male

DRUGS (249)
  1. ADALIMUMAB [Suspect]
     Active Substance: ADALIMUMAB\ISOPROPYL ALCOHOL
     Indication: Deep vein thrombosis
     Dosage: 120
     Route: 050
     Dates: start: 20171019
  2. ADALIMUMAB [Suspect]
     Active Substance: ADALIMUMAB\ISOPROPYL ALCOHOL
     Indication: Crohn^s disease
     Dosage: 8 DOSAGE FORMEND DATE- 2017; ;
     Route: 050
     Dates: start: 201707
  3. ADALIMUMAB [Suspect]
     Active Substance: ADALIMUMAB\ISOPROPYL ALCOHOL
     Route: 050
     Dates: start: 201709, end: 201709
  4. ALBENDAZOLE [Suspect]
     Active Substance: ALBENDAZOLE
     Indication: Colitis ulcerative
     Dosage: UNK
     Route: 042
     Dates: start: 2017, end: 2017
  5. ALBENDAZOLE [Suspect]
     Active Substance: ALBENDAZOLE
     Indication: Deep vein thrombosis
  6. AMINOSALICYLIC ACID [Suspect]
     Active Substance: AMINOSALICYLIC ACID
     Indication: Colitis ulcerative
     Dosage: UNK
     Route: 050
  7. ASACOL [Suspect]
     Active Substance: MESALAMINE
     Dosage: 12 DOSAGE FORM, QD
     Route: 065
  8. ASACOL [Suspect]
     Active Substance: MESALAMINE
     Route: 065
  9. ASACOL [Suspect]
     Active Substance: MESALAMINE
     Route: 065
  10. ASACOL [Suspect]
     Active Substance: MESALAMINE
     Route: 065
  11. ASACOL [Suspect]
     Active Substance: MESALAMINE
     Dosage: 1 DOSAGE FORM
     Route: 065
     Dates: start: 201707
  12. ASACOL [Suspect]
     Active Substance: MESALAMINE
     Dosage: 2.4 G, QD
     Route: 065
     Dates: start: 20161001
  13. ASACOL [Suspect]
     Active Substance: MESALAMINE
     Dosage: 245
     Route: 050
  14. ASACOL [Suspect]
     Active Substance: MESALAMINE
     Dosage: 245
     Route: 050
  15. ASACOL [Suspect]
     Active Substance: MESALAMINE
     Dosage: 3 G, QD
     Route: 065
     Dates: start: 20161001
  16. ASACOL [Suspect]
     Active Substance: MESALAMINE
     Dosage: 3 G, QD
     Route: 065
  17. ASACOL [Suspect]
     Active Substance: MESALAMINE
     Indication: Product used for unknown indication
     Dosage: 3 DOSAGE FORM, BID,  3 TABLETS TWO TIMES A DAY
     Route: 065
     Dates: start: 20161001
  18. ASACOL [Suspect]
     Active Substance: MESALAMINE
     Dosage: 4.8 G, QD
     Route: 065
     Dates: start: 20161001
  19. ASACOL [Suspect]
     Active Substance: MESALAMINE
     Dosage: 4.8 G, QD 3 TABLETS TWO TIMES A DAY
     Route: 065
     Dates: start: 20161001
  20. ASACOL [Suspect]
     Active Substance: MESALAMINE
     Route: 065
  21. ASACOL [Suspect]
     Active Substance: MESALAMINE
     Dosage: 6 DOSAGE FORM(245)
     Route: 050
  22. ASACOL [Suspect]
     Active Substance: MESALAMINE
     Dosage: 6 DOSAGE FORM(245)
     Route: 050
  23. ASACOL [Suspect]
     Active Substance: MESALAMINE
     Indication: Colitis ulcerative
     Dosage: 6DOSAGE FORM
     Route: 050
     Dates: start: 20161001
  24. ASACOL [Suspect]
     Active Substance: MESALAMINE
     Dosage: 50 MG
     Route: 065
  25. ASACOL [Suspect]
     Active Substance: MESALAMINE
     Dosage: 6 DOSAGE FORM, QD
     Route: 065
  26. ASPIRIN [Suspect]
     Active Substance: ASPIRIN
     Route: 050
  27. ASPIRIN [Suspect]
     Active Substance: ASPIRIN
     Route: 050
  28. ASPIRIN [Suspect]
     Active Substance: ASPIRIN
     Indication: Ill-defined disorder
     Route: 065
  29. BUDESONIDE [Suspect]
     Active Substance: BUDESONIDE
     Dosage: 1 DOSAGE FORM, QD
     Route: 048
     Dates: start: 201707
  30. BUDESONIDE [Suspect]
     Active Substance: BUDESONIDE
     Route: 048
  31. BUDESONIDE [Suspect]
     Active Substance: BUDESONIDE
     Route: 050
  32. BUDESONIDE [Suspect]
     Active Substance: BUDESONIDE
     Route: 050
  33. BUDESONIDE [Suspect]
     Active Substance: BUDESONIDE
     Dosage: 8 DOSAGE FORM, QD
     Route: 048
     Dates: start: 201707
  34. BUDESONIDE [Suspect]
     Active Substance: BUDESONIDE
     Dosage: 8 DOSAGE FORM, QD (TABLET EVERY 8 WEEKS)
     Route: 048
  35. BUDESONIDE [Suspect]
     Active Substance: BUDESONIDE
     Indication: Colitis ulcerative
     Dosage: 8 DOSAGE FORM
     Route: 050
     Dates: start: 200707
  36. BUDESONIDE [Suspect]
     Active Substance: BUDESONIDE
     Dosage: 8 DOSAGE FORM, EVERY 8 WEEKS
     Route: 048
     Dates: start: 201707
  37. BUDESONIDE [Suspect]
     Active Substance: BUDESONIDE
     Dosage: UNK (1 EVERY 8 WEEKS)
     Route: 048
  38. BUDESONIDE [Suspect]
     Active Substance: BUDESONIDE
     Dosage: UNK (1 EVERY 8 WEEKS)
     Route: 048
  39. BUDESONIDE [Suspect]
     Active Substance: BUDESONIDE
     Dosage: UNK (TABLET EVERY 8WEEKS)
     Route: 065
  40. CANDESARTAN [Suspect]
     Active Substance: CANDESARTAN
     Indication: Product used for unknown indication
     Dosage: UNK
     Route: 048
  41. CANDESARTAN [Suspect]
     Active Substance: CANDESARTAN
     Dosage: UNK
     Route: 050
  42. CANDESARTAN [Suspect]
     Active Substance: CANDESARTAN
     Dosage: UNK
     Route: 050
  43. CORTIFOAM [Suspect]
     Active Substance: HYDROCORTISONE ACETATE
     Dosage: 1 DOSAGE FORM;
     Route: 050
     Dates: start: 201707
  44. CORTIFOAM [Suspect]
     Active Substance: HYDROCORTISONE ACETATE
     Indication: Colitis ulcerative
     Dosage: 8 DOSAGE FORM, Q8WEEKS
     Route: 048
     Dates: start: 200707
  45. CORTIFOAM [Suspect]
     Active Substance: HYDROCORTISONE ACETATE
     Dosage: 8 DOSAGE FORM, Q8WK
     Route: 048
     Dates: start: 201707
  46. CORTIFOAM [Suspect]
     Active Substance: HYDROCORTISONE ACETATE
     Dosage: UNK, QD (FORMULATION: AEROSOL, FORM)
     Route: 048
  47. CORTIFOAM [Suspect]
     Active Substance: HYDROCORTISONE ACETATE
     Route: 048
  48. CORTIFOAM [Suspect]
     Active Substance: HYDROCORTISONE ACETATE
     Route: 050
  49. CORTIFOAM [Suspect]
     Active Substance: HYDROCORTISONE ACETATE
     Route: 050
  50. BUDESONIDE [Suspect]
     Active Substance: BUDESONIDE
     Indication: Product used for unknown indication
     Dosage: 1 DOSAGE FORM, QD
     Route: 048
     Dates: start: 20170701
  51. BUDESONIDE [Suspect]
     Active Substance: BUDESONIDE
     Dosage: 1 DOSAGE FORM, QD
     Route: 048
  52. BUDESONIDE [Suspect]
     Active Substance: BUDESONIDE
     Route: 065
  53. BUDESONIDE [Suspect]
     Active Substance: BUDESONIDE
     Route: 050
  54. BUDESONIDE [Suspect]
     Active Substance: BUDESONIDE
     Route: 050
  55. BUDESONIDE [Suspect]
     Active Substance: BUDESONIDE
     Dosage: 8 DOSAGE FORM, QD
     Route: 048
  56. BUDESONIDE [Suspect]
     Active Substance: BUDESONIDE
     Dosage: 8 DOSAGE FORM
     Route: 048
     Dates: start: 20170701
  57. BUDESONIDE [Suspect]
     Active Substance: BUDESONIDE
     Indication: Colitis ulcerative
     Dosage: 8 DOSAGE FORM;
     Route: 050
     Dates: start: 200707
  58. BUDESONIDE [Suspect]
     Active Substance: BUDESONIDE
     Dosage: UNK
     Route: 048
  59. BUDESONIDE [Suspect]
     Active Substance: BUDESONIDE
     Dosage: UNK
     Route: 048
  60. BUDESONIDE [Suspect]
     Active Substance: BUDESONIDE
     Dosage: UNK,  Q8WK (1 EVERY 8 WEEKS)
     Route: 048
  61. BUDESONIDE [Suspect]
     Active Substance: BUDESONIDE
     Dosage: UNK,  Q8WK (1 EVERY 8 WEEKS)
     Route: 048
  62. ENTYVIO [Suspect]
     Active Substance: VEDOLIZUMAB
     Dosage: 50 MG (FORMULATION: POWDER FOR SOLUTION INTRAVENOUS))
     Route: 065
  63. ENTYVIO [Suspect]
     Active Substance: VEDOLIZUMAB
     Route: 048
  64. ENTYVIO [Suspect]
     Active Substance: VEDOLIZUMAB
     Route: 050
  65. ENTYVIO [Suspect]
     Active Substance: VEDOLIZUMAB
     Route: 050
  66. ENTYVIO [Suspect]
     Active Substance: VEDOLIZUMAB
     Dosage: 8 DOSAGE FORM;
     Route: 050
     Dates: start: 201807
  67. ENTYVIO [Suspect]
     Active Substance: VEDOLIZUMAB
     Dosage: 8 DOSAGE FORM, Q8WK (1 EVERY 8 WEEKS))
     Route: 065
  68. ENTYVIO [Suspect]
     Active Substance: VEDOLIZUMAB
     Indication: Deep vein thrombosis
     Dosage: UNK, QD
     Route: 048
     Dates: start: 2017, end: 2017
  69. ENTYVIO [Suspect]
     Active Substance: VEDOLIZUMAB
     Dosage: 200 UNK
     Route: 048
     Dates: start: 2017, end: 2017
  70. ENTYVIO [Suspect]
     Active Substance: VEDOLIZUMAB
     Indication: Colitis ulcerative
     Dosage: 200 UNK; ;
     Route: 050
     Dates: start: 2017, end: 2017
  71. ENTYVIO [Suspect]
     Active Substance: VEDOLIZUMAB
     Dosage: UNK
     Route: 042
     Dates: start: 2017, end: 2017
  72. ENTYVIO [Suspect]
     Active Substance: VEDOLIZUMAB
     Dosage: UNK
     Route: 048
  73. ENTYVIO [Suspect]
     Active Substance: VEDOLIZUMAB
     Dosage: UNK
     Route: 065
  74. HYDROCORTISONE [Suspect]
     Active Substance: HYDROCORTISONE
     Indication: Colitis ulcerative
     Dosage: 1 DOSAGE FORM, QD
     Route: 048
     Dates: start: 201807
  75. HYDROCORTISONE [Suspect]
     Active Substance: HYDROCORTISONE
     Route: 050
  76. HYDROCORTISONE [Suspect]
     Active Substance: HYDROCORTISONE
     Route: 050
  77. HYDROCORTISONE [Suspect]
     Active Substance: HYDROCORTISONE
     Dosage: 3 DOSAGE FORM, BID
     Route: 048
  78. HYDROCORTISONE [Suspect]
     Active Substance: HYDROCORTISONE
     Dosage: 8 DOSAGE FORM, QD
     Route: 048
     Dates: start: 201807
  79. HYDROCORTISONE [Suspect]
     Active Substance: HYDROCORTISONE
     Indication: Colitis ulcerative
     Dosage: 8 DOSAGE FORM,Q8WK
     Route: 048
     Dates: start: 2017
  80. HYDROCORTISONE [Suspect]
     Active Substance: HYDROCORTISONE
     Dosage: 8 DOSAGE FORM,Q8WK
     Route: 048
     Dates: start: 2018
  81. HYDROCORTISONE [Suspect]
     Active Substance: HYDROCORTISONE
     Dosage: UNK, QD
     Route: 048
  82. HYDROCORTISONE [Suspect]
     Active Substance: HYDROCORTISONE
     Dosage: UNK (1 EVERY 6 WEEKS)
     Route: 065
  83. HYDROCORTISONE [Suspect]
     Active Substance: HYDROCORTISONE
     Dosage: UNK, Q8WK
     Route: 048
  84. HYDROCORTISONE ACETATE [Suspect]
     Active Substance: HYDROCORTISONE ACETATE
     Dosage: 1 DOSAGE FORM;
     Route: 050
     Dates: start: 201807
  85. HYDROCORTISONE ACETATE [Suspect]
     Active Substance: HYDROCORTISONE ACETATE
     Route: 050
  86. HYDROCORTISONE ACETATE [Suspect]
     Active Substance: HYDROCORTISONE ACETATE
     Route: 050
  87. HYDROCORTISONE ACETATE [Suspect]
     Active Substance: HYDROCORTISONE ACETATE
     Route: 065
  88. HYDROCORTISONE ACETATE [Suspect]
     Active Substance: HYDROCORTISONE ACETATE
     Dosage: 8 DOSAGE FORM, QD
     Route: 048
     Dates: start: 2017
  89. HYDROCORTISONE ACETATE [Suspect]
     Active Substance: HYDROCORTISONE ACETATE
     Dosage: 8 DOSAGE FORM, QD
     Route: 048
     Dates: start: 201807
  90. HYDROCORTISONE ACETATE [Suspect]
     Active Substance: HYDROCORTISONE ACETATE
     Indication: Crohn^s disease
     Dosage: 8 DOSAGE FORM Q8W
     Route: 048
     Dates: start: 201707
  91. HYDROCORTISONE ACETATE [Suspect]
     Active Substance: HYDROCORTISONE ACETATE
     Dosage: 8 DOSAGE FORM,Q8WK
     Route: 048
     Dates: start: 201807
  92. HYDROCORTISONE ACETATE [Suspect]
     Active Substance: HYDROCORTISONE ACETATE
     Dosage: UNK UNK, QD
     Route: 048
  93. HYDROCORTISONE ACETATE [Suspect]
     Active Substance: HYDROCORTISONE ACETATE
     Indication: Colitis ulcerative
     Dosage: UNK
     Route: 042
  94. HYDROCORTISONE ACETATE [Suspect]
     Active Substance: HYDROCORTISONE ACETATE
     Dosage: UNK
     Route: 065
  95. HYDROCORTISONE ACETATE [Suspect]
     Active Substance: HYDROCORTISONE ACETATE
     Dosage: UNK (1 EVERY 6 WEEKS)
     Route: 065
  96. HYDROCORTISONE ACETATE [Suspect]
     Active Substance: HYDROCORTISONE ACETATE
     Dosage: UNK Q8WK (1 EVERY 8 WEEKS)
     Route: 048
  97. HYDROCORTISONE ACETATE [Suspect]
     Active Substance: HYDROCORTISONE ACETATE
     Route: 050
     Dates: start: 20160101, end: 20161001
  98. HYDROCORTISONE ACETATE [Suspect]
     Active Substance: HYDROCORTISONE ACETATE
     Route: 050
  99. HYDROCORTISONE ACETATE [Suspect]
     Active Substance: HYDROCORTISONE ACETATE
     Route: 050
  100. HYDROCORTISONE ACETATE [Suspect]
     Active Substance: HYDROCORTISONE ACETATE
     Route: 065
  101. INFLIXIMAB [Suspect]
     Active Substance: INFLIXIMAB
     Dosage: 5 MG (1 EVERY 8 WEEKS)
     Route: 065
  102. INFLIXIMAB [Suspect]
     Active Substance: INFLIXIMAB
     Indication: Colitis ulcerative
     Dosage: 5 MG/KG, Q8WK
     Route: 042
     Dates: start: 20170101, end: 20170901
  103. INFLIXIMAB [Suspect]
     Active Substance: INFLIXIMAB
     Dosage: 5 MG/KG, Q8WK
     Route: 042
     Dates: start: 20171019
  104. INFLIXIMAB [Suspect]
     Active Substance: INFLIXIMAB
     Dosage: 7 MG/KG, Q8WK
     Route: 042
  105. INFLIXIMAB [Suspect]
     Active Substance: INFLIXIMAB
     Dosage: 8 DOSAGE FORM
     Route: 048
     Dates: start: 201707
  106. INFLIXIMAB [Suspect]
     Active Substance: INFLIXIMAB
     Dosage: UNK, Q2W
     Route: 042
  107. INFLIXIMAB [Suspect]
     Active Substance: INFLIXIMAB
     Dosage: UNK
     Route: 042
  108. INFLIXIMAB [Suspect]
     Active Substance: INFLIXIMAB
     Dosage: UNK
     Route: 042
  109. INFLIXIMAB [Suspect]
     Active Substance: INFLIXIMAB
     Dosage: UNK
     Route: 065
  110. INFLIXIMAB [Suspect]
     Active Substance: INFLIXIMAB
     Dosage: UNK (1 EVERY 6 WEEKS)
     Route: 042
  111. INFLIXIMAB [Suspect]
     Active Substance: INFLIXIMAB
     Dosage: UNK, Q6WK
     Route: 042
     Dates: start: 20171019
  112. INFLIXIMAB [Suspect]
     Active Substance: INFLIXIMAB
     Dosage: UNK, Q6WK
     Route: 042
     Dates: start: 201709
  113. INFLIXIMAB [Suspect]
     Active Substance: INFLIXIMAB
     Dosage: UNK, Q8WK (1 EVERY 8 WEEKS)
     Route: 042
  114. INFLIXIMAB [Suspect]
     Active Substance: INFLIXIMAB
     Indication: Crohn^s disease
     Dosage: UNK, Q8WK
     Route: 042
     Dates: start: 20170101
  115. INFLIXIMAB [Suspect]
     Active Substance: INFLIXIMAB
     Dosage: UNK (0, 2, 6 WEEKS, THEN EVERY 8 WEEKS
     Route: 042
     Dates: start: 201709
  116. MESALAMINE [Suspect]
     Active Substance: MESALAMINE
     Dosage: 2.4 G, QD
     Route: 065
     Dates: start: 20161001
  117. MESALAMINE [Suspect]
     Active Substance: MESALAMINE
     Dosage: 4.8 G, QD
     Route: 065
     Dates: start: 20161001
  118. MESALAMINE [Suspect]
     Active Substance: MESALAMINE
     Route: 050
     Dates: start: 20160101, end: 201709
  119. MESALAMINE [Suspect]
     Active Substance: MESALAMINE
     Dosage: 3 DOSAGE FORM
     Route: 065
     Dates: start: 201610
  120. MESALAMINE [Suspect]
     Active Substance: MESALAMINE
     Dosage: 4.8 MG, QD
     Route: 065
  121. MESALAMINE [Suspect]
     Active Substance: MESALAMINE
     Dosage: 4.8 MG
     Route: 065
     Dates: start: 20170101
  122. MESALAMINE [Suspect]
     Active Substance: MESALAMINE
     Dosage: 6 DOSAGE FORM
     Route: 065
     Dates: start: 20160101, end: 20161001
  123. MESALAMINE [Suspect]
     Active Substance: MESALAMINE
     Dosage: 50 MG
     Route: 048
     Dates: start: 20170101, end: 20170901
  124. MESALAMINE [Suspect]
     Active Substance: MESALAMINE
     Dosage: 50 MG
     Route: 065
     Dates: start: 20160101, end: 20161001
  125. MESALAMINE [Suspect]
     Active Substance: MESALAMINE
     Dosage: 50 MG
     Route: 065
     Dates: start: 20170101, end: 20170901
  126. MESALAMINE [Suspect]
     Active Substance: MESALAMINE
     Dosage: 50 MG
     Route: 065
     Dates: start: 2009
  127. MESALAMINE [Suspect]
     Active Substance: MESALAMINE
     Dosage: 50 MG
     Route: 065
  128. MESALAMINE [Suspect]
     Active Substance: MESALAMINE
     Dosage: 50 MG
     Route: 065
  129. MESALAMINE [Suspect]
     Active Substance: MESALAMINE
     Route: 050
     Dates: start: 20160101, end: 20170901
  130. MESALAMINE [Suspect]
     Active Substance: MESALAMINE
     Dosage: 6 DOSAGE FORM, QD
     Route: 065
     Dates: start: 20161001
  131. MESALAMINE [Suspect]
     Active Substance: MESALAMINE
     Dosage: 6 DOSAGE FORM, QD (0.8 G, 3 TABLETS TWO TIMES A DAY (4.8
     Route: 065
     Dates: start: 20161001
  132. MESALAMINE [Suspect]
     Active Substance: MESALAMINE
     Dosage: 8 DOSAGE FORM, QD
     Route: 048
     Dates: start: 201707
  133. MESALAMINE [Suspect]
     Active Substance: MESALAMINE
     Indication: Colitis ulcerative
     Dosage: 8 DOSAGE FORM, Q8WK
     Route: 048
     Dates: start: 200707
  134. MESALAMINE [Suspect]
     Active Substance: MESALAMINE
     Dosage: 8 DOSAGE FORM,Q8WK
     Route: 065
     Dates: start: 201707
  135. MESALAMINE [Suspect]
     Active Substance: MESALAMINE
     Dosage: UNK, QD
     Route: 048
  136. MESALAMINE [Suspect]
     Active Substance: MESALAMINE
     Dosage: 4.8
     Route: 065
     Dates: start: 201709, end: 2017
  137. MESALAMINE [Suspect]
     Active Substance: MESALAMINE
     Dosage: UNK
     Route: 048
  138. MESALAMINE [Suspect]
     Active Substance: MESALAMINE
     Dosage: UNK
     Route: 048
  139. MESALAMINE [Suspect]
     Active Substance: MESALAMINE
     Dosage: UNK
     Route: 050
     Dates: start: 201709, end: 201709
  140. MESALAMINE [Suspect]
     Active Substance: MESALAMINE
     Dosage: UNK
     Route: 065
     Dates: start: 20170101, end: 20170901
  141. MESALAMINE [Suspect]
     Active Substance: MESALAMINE
     Dosage: UNK
     Route: 065
     Dates: start: 20170101, end: 20170901
  142. MESALAMINE [Suspect]
     Active Substance: MESALAMINE
     Dosage: UNK
     Route: 065
     Dates: start: 20170101, end: 20171001
  143. MESALAMINE [Suspect]
     Active Substance: MESALAMINE
     Dosage: UNK
     Route: 065
     Dates: start: 20170101, end: 20210901
  144. MESALAMINE [Suspect]
     Active Substance: MESALAMINE
     Dosage: UNK
     Route: 065
     Dates: start: 2017, end: 201709
  145. MESALAMINE [Suspect]
     Active Substance: MESALAMINE
     Dosage: UNK
     Route: 065
     Dates: start: 201601, end: 201610
  146. MESALAMINE [Suspect]
     Active Substance: MESALAMINE
     Dosage: UNK
     Route: 065
     Dates: start: 202109, end: 202109
  147. MESALAMINE [Suspect]
     Active Substance: MESALAMINE
     Dosage: UNK
     Route: 065
  148. MESALAMINE [Suspect]
     Active Substance: MESALAMINE
     Dosage: UNK
     Route: 065
  149. MESALAMINE [Suspect]
     Active Substance: MESALAMINE
     Dosage: 8 DOSAGE FORM, Q8W
     Route: 048
     Dates: start: 201707
  150. MESALAMINE [Suspect]
     Active Substance: MESALAMINE
     Indication: Colitis ulcerative
     Dosage: UNK
     Route: 065
     Dates: start: 20160101, end: 20161001
  151. MESALAMINE [Suspect]
     Active Substance: MESALAMINE
     Dosage: UNK
     Route: 065
     Dates: start: 20170101, end: 20170901
  152. MESALAMINE [Suspect]
     Active Substance: MESALAMINE
     Dosage: 2.4 G, QD
     Route: 065
  153. MESALAMINE [Suspect]
     Active Substance: MESALAMINE
     Dosage: 2.4 G, QD
     Route: 065
  154. MESALAMINE [Suspect]
     Active Substance: MESALAMINE
     Dosage: 3 G, QD
     Route: 065
  155. MESALAMINE [Suspect]
     Active Substance: MESALAMINE
     Dosage: 4.8 MG, QD
     Route: 065
  156. MESALAMINE [Suspect]
     Active Substance: MESALAMINE
     Dosage: 50 MG
     Route: 048
  157. MESALAMINE [Suspect]
     Active Substance: MESALAMINE
     Dosage: 50 MG
     Route: 065
  158. MESALAMINE [Suspect]
     Active Substance: MESALAMINE
     Dosage: 50 MG (THERAPY DURATION: 275.0 DAYS)
     Route: 048
  159. MESALAMINE [Suspect]
     Active Substance: MESALAMINE
     Dosage: 50 MG (THERAPY DURATION: 487)
     Route: 065
  160. MESALAMINE [Suspect]
     Active Substance: MESALAMINE
     Dosage: 6 DOSAGE FORM, QD
     Route: 048
  161. MESALAMINE [Suspect]
     Active Substance: MESALAMINE
     Dosage: 8 DOSAGE FORM
     Route: 048
  162. MESALAMINE [Suspect]
     Active Substance: MESALAMINE
     Dosage: UNK
     Route: 048
  163. MESALAMINE [Suspect]
     Active Substance: MESALAMINE
     Dosage: UNK, QD
     Route: 065
  164. MESALAMINE [Suspect]
     Active Substance: MESALAMINE
     Indication: Colitis ulcerative
     Dosage: UNK
     Route: 065
  165. MESALAMINE [Suspect]
     Active Substance: MESALAMINE
     Dosage: UNK (THERAPY DURATION: 1 DAYS)
     Route: 065
  166. MESALAMINE [Suspect]
     Active Substance: MESALAMINE
     Dosage: UNK (THERAPY DURATION: 243.0)
     Route: 065
  167. MESALAMINE [Suspect]
     Active Substance: MESALAMINE
     Dosage: UNK (THERAPY DURATION: 244.0 DAYS)
     Route: 065
  168. MESALAMINE [Suspect]
     Active Substance: MESALAMINE
     Dosage: UNK (THERAPY DURATION: 274.0 DAYS)
     Route: 065
  169. MESALAMINE [Suspect]
     Active Substance: MESALAMINE
     Dosage: UNK (THERAPY DURATION: 275.0 DAYS)
     Route: 048
  170. MESALAMINE [Suspect]
     Active Substance: MESALAMINE
     Dosage: UNK, Q8W (1 EVERY 8 WEEKS)
     Route: 048
  171. PARA-AMINOSALICYLIC ACID [Suspect]
     Active Substance: AMINOSALICYLIC ACID
     Indication: Colitis ulcerative
     Dosage: UNK
     Route: 048
  172. PARA-AMINOSALICYLIC ACID [Suspect]
     Active Substance: AMINOSALICYLIC ACID
     Indication: Deep vein thrombosis
     Dosage: UNK
     Route: 048
  173. PARA-AMINOSALICYLIC ACID [Suspect]
     Active Substance: AMINOSALICYLIC ACID
     Route: 050
  174. PARA-AMINOSALICYLIC ACID [Suspect]
     Active Substance: AMINOSALICYLIC ACID
     Route: 065
  175. PREDNISONE [Suspect]
     Active Substance: PREDNISONE
     Dosage: 40 MG, QD
     Route: 065
  176. PREDNISONE [Suspect]
     Active Substance: PREDNISONE
     Route: 065
  177. PREDNISONE [Suspect]
     Active Substance: PREDNISONE
     Route: 050
  178. PREDNISONE [Suspect]
     Active Substance: PREDNISONE
     Route: 050
  179. PREDNISONE [Suspect]
     Active Substance: PREDNISONE
     Indication: Colitis ulcerative
     Dosage: 50 MG
     Route: 050
     Dates: start: 2009, end: 2009
  180. PREDNISONE [Suspect]
     Active Substance: PREDNISONE
     Route: 050
  181. PREDNISONE [Suspect]
     Active Substance: PREDNISONE
     Route: 050
  182. PREDNISONE [Suspect]
     Active Substance: PREDNISONE
     Dosage: UNK
     Route: 050
     Dates: start: 2017, end: 2017
  183. PREDNISONE [Suspect]
     Active Substance: PREDNISONE
     Dosage: UNK
     Route: 065
  184. PREDNISONE [Suspect]
     Active Substance: PREDNISONE
     Dosage: UNK, (TAPERED DOSE)
     Route: 065
     Dates: start: 2009
  185. REMICADE [Suspect]
     Active Substance: INFLIXIMAB
     Indication: Colitis ulcerative
     Dosage: 120
     Route: 050
     Dates: start: 20170101, end: 20170901
  186. REMICADE [Suspect]
     Active Substance: INFLIXIMAB
     Dosage: 120START DATE AND END DATE- 2017
     Route: 050
  187. REMICADE [Suspect]
     Active Substance: INFLIXIMAB
     Dosage: 120START DATE AND END DATE- 2017
     Route: 050
  188. REMICADE [Suspect]
     Active Substance: INFLIXIMAB
     Dosage: 120; ;
     Route: 050
     Dates: start: 201709
  189. REMICADE [Suspect]
     Active Substance: INFLIXIMAB
     Indication: Colitis ulcerative
     Dosage: UNK
     Route: 050
  190. REMICADE [Suspect]
     Active Substance: INFLIXIMAB
     Route: 050
  191. REMICADE [Suspect]
     Active Substance: INFLIXIMAB
     Route: 050
  192. REMICADE [Suspect]
     Active Substance: INFLIXIMAB
     Route: 050
  193. SULFASALAZINE [Suspect]
     Active Substance: SULFASALAZINE
     Dosage: 3 MG, QD
     Route: 065
  194. SULFASALAZINE [Suspect]
     Active Substance: SULFASALAZINE
     Dosage: 5 MG, QD
     Route: 065
  195. SULFASALAZINE [Suspect]
     Active Substance: SULFASALAZINE
     Indication: Product used for unknown indication
     Dosage: UNK
     Route: 050
     Dates: start: 2009, end: 2016
  196. SULFASALAZINE [Suspect]
     Active Substance: SULFASALAZINE
     Route: 065
  197. SULFASALAZINE [Suspect]
     Active Substance: SULFASALAZINE
     Dosage: UNK
     Route: 050
     Dates: start: 20160101, end: 20160101
  198. SULFASALAZINE [Suspect]
     Active Substance: SULFASALAZINE
     Indication: Arthritis
     Dosage: UNK
     Route: 065
     Dates: start: 20091001, end: 20161001
  199. SULFASALAZINE [Suspect]
     Active Substance: SULFASALAZINE
     Indication: Colitis ulcerative
     Dosage: UNK
     Route: 065
     Dates: start: 20090101, end: 20160101
  200. SULFASALAZINE [Suspect]
     Active Substance: SULFASALAZINE
     Dosage: UNK
     Route: 065
     Dates: start: 201709, end: 201709
  201. SULFASALAZINE [Suspect]
     Active Substance: SULFASALAZINE
     Dosage: UNK
     Route: 065
     Dates: end: 201709
  202. SULFASALAZINE [Suspect]
     Active Substance: SULFASALAZINE
     Dosage: UNK
     Route: 065
  203. SULFASALAZINE [Suspect]
     Active Substance: SULFASALAZINE
     Dosage: UNK
     Route: 065
  204. SULFASALAZINE [Suspect]
     Active Substance: SULFASALAZINE
     Dosage: UNK
     Route: 065
  205. SULFASALAZINE [Suspect]
     Active Substance: SULFASALAZINE
     Dosage: UNK
     Route: 065
  206. VEDOLIZUMAB [Suspect]
     Active Substance: VEDOLIZUMAB
     Dosage: 1 DF, QD
     Route: 048
  207. VEDOLIZUMAB [Suspect]
     Active Substance: VEDOLIZUMAB
     Dosage: UNK, QD
     Route: 048
  208. VEDOLIZUMAB [Suspect]
     Active Substance: VEDOLIZUMAB
     Dosage: UNK
     Route: 042
     Dates: start: 2017, end: 2017
  209. VEDOLIZUMAB [Suspect]
     Active Substance: VEDOLIZUMAB
     Indication: Colitis ulcerative
     Dosage: UNK
     Route: 048
     Dates: start: 201601, end: 201610
  210. VEDOLIZUMAB [Suspect]
     Active Substance: VEDOLIZUMAB
     Dosage: UNK
     Route: 048
     Dates: start: 2017, end: 2017
  211. VEDOLIZUMAB [Suspect]
     Active Substance: VEDOLIZUMAB
     Indication: Deep vein thrombosis
     Dosage: UNK
     Route: 065
     Dates: end: 2017
  212. VEDOLIZUMAB [Suspect]
     Active Substance: VEDOLIZUMAB
     Route: 042
  213. VEDOLIZUMAB [Suspect]
     Active Substance: VEDOLIZUMAB
     Route: 065
     Dates: start: 2009
  214. WARFARIN [Suspect]
     Active Substance: WARFARIN
     Dosage: 8 DOSAGE FORM;
     Route: 050
     Dates: start: 201707
  215. WARFARIN [Suspect]
     Active Substance: WARFARIN
     Dosage: 8 DOSAGE FORM, Q8WK
     Route: 048
     Dates: start: 201707
  216. WARFARIN [Suspect]
     Active Substance: WARFARIN
     Indication: Deep vein thrombosis
     Dosage: UNK
     Route: 048
     Dates: start: 2009, end: 2009
  217. WARFARIN [Suspect]
     Active Substance: WARFARIN
     Dosage: UNK (TAPERED DOSE)
     Route: 065
     Dates: start: 2019
  218. WARFARIN [Suspect]
     Active Substance: WARFARIN
     Indication: Colitis ulcerative
     Dosage: UNK TAPERED DOSE IN 2009 (EXACT DOSE UNKNOWN);;
     Route: 065
     Dates: end: 2009
  219. WARFARIN [Suspect]
     Active Substance: WARFARIN
     Route: 065
  220. WARFARIN SODIUM [Suspect]
     Active Substance: WARFARIN SODIUM
     Dosage: 1 DOSAGE FORM, QD
     Route: 048
     Dates: start: 201707
  221. WARFARIN SODIUM [Suspect]
     Active Substance: WARFARIN SODIUM
     Dosage: 8 DOSAGE FORM,Q8WK
     Route: 050
     Dates: start: 201707
  222. WARFARIN SODIUM [Suspect]
     Active Substance: WARFARIN SODIUM
     Dosage: UNK, QD
     Route: 050
     Dates: end: 2019
  223. WARFARIN SODIUM [Suspect]
     Active Substance: WARFARIN SODIUM
     Dosage: UNK, Q8WK
     Route: 048
     Dates: end: 2019
  224. WARFARIN SODIUM [Suspect]
     Active Substance: WARFARIN SODIUM
     Indication: Deep vein thrombosis
     Dosage: UNK
     Route: 050
     Dates: start: 2009, end: 2009
  225. WARFARIN SODIUM [Suspect]
     Active Substance: WARFARIN SODIUM
     Indication: Colitis ulcerative
     Dosage: UNK
     Route: 065
     Dates: start: 2019
  226. ALBENDAZOLE [Concomitant]
     Active Substance: ALBENDAZOLE
     Indication: Colitis ulcerative
     Dosage: 231; ;
     Route: 065
     Dates: start: 20090101, end: 20160101
  227. ALBENDAZOLE [Concomitant]
     Active Substance: ALBENDAZOLE
     Dosage: 8 DOSAGE FORM; ;
     Route: 065
  228. ALBENDAZOLE [Concomitant]
     Active Substance: ALBENDAZOLE
     Dosage: 8 DOSAGE FORM; ;
     Route: 065
  229. HUMIRA [Concomitant]
     Active Substance: ADALIMUMAB
     Indication: Crohn^s disease
     Dosage: 8 DOSAGE FORM
     Route: 048
     Dates: start: 201707
  230. HUMIRA [Concomitant]
     Active Substance: ADALIMUMAB
     Dosage: UNK, QD
     Route: 048
  231. HUMIRA [Concomitant]
     Active Substance: ADALIMUMAB
     Dosage: UNK, QD
     Route: 048
  232. HUMIRA [Concomitant]
     Active Substance: ADALIMUMAB
     Indication: Deep vein thrombosis
     Dosage: UNK
     Route: 048
     Dates: start: 201709, end: 201709
  233. HUMIRA [Concomitant]
     Active Substance: ADALIMUMAB
     Indication: Colitis ulcerative
     Dosage: UNK (1 EVERY 8 WEEKS)
     Route: 048
  234. HUMIRA [Concomitant]
     Active Substance: ADALIMUMAB
     Dosage: UNK (1 EVERY 8 WEEKS)
     Route: 048
  235. HYDROCORTISONE [Concomitant]
     Active Substance: HYDROCORTISONE
     Indication: Colitis ulcerative
     Dosage: 1 DF
     Route: 050
  236. HYDROCORTISONE [Concomitant]
     Active Substance: HYDROCORTISONE
     Route: 050
  237. METHOTREXATE [Concomitant]
     Active Substance: METHOTREXATE
     Indication: Colitis ulcerative
     Dosage: UNK
     Route: 065
     Dates: start: 20090101, end: 20160101
  238. METHOTREXATE [Concomitant]
     Active Substance: METHOTREXATE
     Indication: Product used for unknown indication
     Dosage: UNK
     Route: 065
     Dates: start: 201709, end: 201709
  239. METHOTREXATE [Concomitant]
     Active Substance: METHOTREXATE
     Dosage: UNK
     Route: 065
  240. METHOTREXATE [Concomitant]
     Active Substance: METHOTREXATE
     Dosage: UNK
     Route: 065
  241. METHOTREXATE [Concomitant]
     Active Substance: METHOTREXATE
     Dosage: UNK
     Route: 065
  242. METHOTREXATE [Concomitant]
     Active Substance: METHOTREXATE
     Route: 065
  243. MESALAMINE [Concomitant]
     Active Substance: MESALAMINE
     Dosage: 245; ;
     Route: 050
     Dates: start: 20160101
  244. MESALAMINE [Concomitant]
     Active Substance: MESALAMINE
     Indication: Colitis ulcerative
     Dosage: 245; ;
     Route: 065
     Dates: start: 2017, end: 2017
  245. TOFACITINIB CITRATE [Concomitant]
     Active Substance: TOFACITINIB CITRATE
     Indication: Product used for unknown indication
     Dosage: UNK
     Route: 065
  246. XELJANZ [Concomitant]
     Active Substance: TOFACITINIB CITRATE
     Indication: Colitis ulcerative
     Dosage: 5 MG, BID
     Route: 048
  247. XELJANZ [Concomitant]
     Active Substance: TOFACITINIB CITRATE
     Route: 048
  248. XELJANZ [Concomitant]
     Active Substance: TOFACITINIB CITRATE
     Route: 065
  249. XELJANZ [Concomitant]
     Active Substance: TOFACITINIB CITRATE
     Route: 065

REACTIONS (23)
  - Deep vein thrombosis [Not Recovered/Not Resolved]
  - Frequent bowel movements [Not Recovered/Not Resolved]
  - Bronchiectasis [Not Recovered/Not Resolved]
  - Weight decreased [Not Recovered/Not Resolved]
  - Haematochezia [Not Recovered/Not Resolved]
  - Stress [Not Recovered/Not Resolved]
  - Rectal haemorrhage [Not Recovered/Not Resolved]
  - Steroid dependence [Not Recovered/Not Resolved]
  - Condition aggravated [Not Recovered/Not Resolved]
  - Intentional product use issue [Not Recovered/Not Resolved]
  - Medication error [Unknown]
  - Product use in unapproved indication [Unknown]
  - Inappropriate schedule of product administration [Not Recovered/Not Resolved]
  - Off label use [Unknown]
  - Impaired quality of life [Not Recovered/Not Resolved]
  - Impaired work ability [Not Recovered/Not Resolved]
  - Loss of personal independence in daily activities [Not Recovered/Not Resolved]
  - Loss of personal independence in daily activities [Not Recovered/Not Resolved]
  - Adverse drug reaction [Not Recovered/Not Resolved]
  - Colitis ulcerative [Not Recovered/Not Resolved]
  - Colitis ulcerative [Not Recovered/Not Resolved]
  - Drug ineffective [Not Recovered/Not Resolved]
  - Rash [Not Recovered/Not Resolved]
